FAERS Safety Report 7244625-7 (Version None)
Quarter: 2011Q1

REPORT INFORMATION
  Report Type: 
  Country: None (occurrence: None)
  Receive Date: 20110125
  Receipt Date: 20110117
  Transmission Date: 20110831
  Serious: Yes (Hospitalization)
  Sender: FDA-Public Use
  Company Number: JP-MERCK-1003USA04435

PATIENT
  Age: 89 Year
  Sex: Female

DRUGS (2)
  1. CALBLOCK [Concomitant]
     Indication: HYPERTENSION
     Route: 048
  2. HYZAAR [Suspect]
     Indication: HYPERTENSION
     Route: 048
     Dates: start: 20091219, end: 20100227

REACTIONS (2)
  - HYPONATRAEMIA [None]
  - STRESS CARDIOMYOPATHY [None]
